FAERS Safety Report 15454129 (Version 3)
Quarter: 2019Q1

REPORT INFORMATION
  Report Type: Spontaneous
  Country: US (occurrence: US)
  Receive Date: 20181002
  Receipt Date: 20190207
  Transmission Date: 20190417
  Serious: Yes (Life-Threatening, Hospitalization, Other)
  Sender: FDA-Public Use
  Company Number: US-BIOGEN-2018BI00634433

PATIENT
  Sex: Female

DRUGS (2)
  1. TYSABRI [Suspect]
     Active Substance: NATALIZUMAB
     Indication: MULTIPLE SCLEROSIS
     Route: 065
     Dates: start: 20170428, end: 20180329
  2. TYSABRI [Suspect]
     Active Substance: NATALIZUMAB
     Route: 065
     Dates: end: 201805

REACTIONS (6)
  - CSF volume increased [Unknown]
  - Pain [Unknown]
  - Brain neoplasm [Unknown]
  - Urinary tract infection [Recovered/Resolved]
  - Feeling of despair [Unknown]
  - Pollakiuria [Unknown]

NARRATIVE: CASE EVENT DATE: 2018
